FAERS Safety Report 21482000 (Version 1)
Quarter: 2022Q4

REPORT INFORMATION
  Report Type: Spontaneous
  Country: BR (occurrence: BR)
  Receive Date: 20221020
  Receipt Date: 20221020
  Transmission Date: 20230113
  Serious: No
  Sender: FDA-Public Use
  Company Number: BR-LUPIN PHARMACEUTICALS INC.-2022-12023

PATIENT
  Age: 32 Year
  Sex: Male

DRUGS (17)
  1. SULFAMETHOXAZOLE AND TRIMETHOPRIM [Suspect]
     Active Substance: SULFAMETHOXAZOLE\TRIMETHOPRIM
     Indication: Infection prophylaxis
     Dosage: SULFAMETHOXAZOLE 800MG WITH TRIMETHOPRIM 160MG
     Route: 065
  2. ONDANSETRON [Suspect]
     Active Substance: ONDANSETRON
     Indication: Prophylaxis of nausea and vomiting
     Dosage: 12 MG, EIGHT CYCLES (PART OF HYPER-CVAD CHEMOTHERAPY PROTOCOL
     Route: 065
  3. CYCLOPHOSPHAMIDE [Suspect]
     Active Substance: CYCLOPHOSPHAMIDE
     Indication: Non-Hodgkin^s lymphoma
     Dosage: 300 MILLIGRAM/SQ. METER, EIGHT CYCLES (~PART OF HYPER-CVAD CHEMOTHERAPY PROTOCOL)
     Route: 065
  4. VINCRISTINE [Suspect]
     Active Substance: VINCRISTINE
     Indication: Non-Hodgkin^s lymphoma
     Dosage: 2 MG, EIGHT CYCLES (PART OF HYPER-CVAD CHEMOTHERAPY PROTOCOL AND PART OF POMP REGIMEN)
     Route: 065
  5. VINCRISTINE [Suspect]
     Active Substance: VINCRISTINE
     Dosage: 2 MG, MAINTENANCE REGIMEN
     Route: 065
  6. DOXORUBICIN [Suspect]
     Active Substance: DOXORUBICIN
     Indication: Non-Hodgkin^s lymphoma
     Dosage: 5 MILLIGRAM/SQ. METER, EIGHT CYCLES (PART OF HYPER-CVAD CHEMOTHERAPY PROTOCOL)
     Route: 065
  7. DEXAMETHASONE [Suspect]
     Active Substance: DEXAMETHASONE
     Indication: Non-Hodgkin^s lymphoma
     Dosage: 40 MG, EIGHT CYCLES (PART OF HYPER-CVAD CHEMOTHERAPY PROTOCOL)
     Route: 065
  8. MESNA [Suspect]
     Active Substance: MESNA
     Indication: Chemotherapy side effect prophylaxis
     Dosage: 600 MILLIGRAM/SQ. METER (EIGHT CYCLES (PART OF HYPER-CVAD CHEMOTHERAPY PROTOCOL)
     Route: 065
  9. METHOTREXATE [Suspect]
     Active Substance: METHOTREXATE
     Indication: Non-Hodgkin^s lymphoma
     Dosage: 800 MILLIGRAM/SQ. METER, EIGHT CYCLES (PART OF HYPER-CVAD CHEMOTHERAPY PROTOCOL AND PART OF POMP REG
     Route: 065
  10. METHOTREXATE [Suspect]
     Active Substance: METHOTREXATE
     Dosage: 20 MILLIGRAM/SQ. METER, MAINTENANCE REGIMEN
     Route: 065
  11. LEUCOVORIN [Suspect]
     Active Substance: LEUCOVORIN
     Indication: Non-Hodgkin^s lymphoma
     Dosage: 50 MG, EIGHT CYCLES (PART OF HYPER-CVAD CHEMOTHERAPY PROTOCOL)
     Route: 065
  12. METHYLPREDNISOLONE [Suspect]
     Active Substance: METHYLPREDNISOLONE
     Indication: Non-Hodgkin^s lymphoma
     Dosage: 50 MG, EIGHT CYCLES (PART OF HYPER-CVAD CHEMOTHERAPY PROTOCOL)
     Route: 065
  13. CYTARABINE [Suspect]
     Active Substance: CYTARABINE
     Indication: Non-Hodgkin^s lymphoma
     Dosage: 300 MILLIGRAM/SQ. METER, EIGHT CYCLES (PART OF HYPER-CVAD CHEMOTHERAPY PROTOCOL)
     Route: 065
  14. ACYCLOVIR [Suspect]
     Active Substance: ACYCLOVIR
     Indication: Infection prophylaxis
     Dosage: 200 MG
     Route: 065
  15. AMOXICILLIN AND CLAVULANATE POTASSIUM [Suspect]
     Active Substance: AMOXICILLIN\CLAVULANATE POTASSIUM
     Indication: Infection prophylaxis
     Dosage: UNK
     Route: 065
  16. MERCAPTOPURINE [Suspect]
     Active Substance: MERCAPTOPURINE
     Indication: Non-Hodgkin^s lymphoma
     Dosage: 50 MG, MAINTENANCE REGIMEN (PART OF POMP REGIMEN)
     Route: 065
  17. PREDNISONE [Suspect]
     Active Substance: PREDNISONE
     Indication: Non-Hodgkin^s lymphoma
     Dosage: 200 MG, MAINTENANCE REGIMEN (~PART OF POMP REGIMEN)
     Route: 065

REACTIONS (2)
  - Oral lichenoid reaction [Recovering/Resolving]
  - Therapy partial responder [Unknown]
